FAERS Safety Report 8262501-8 (Version None)
Quarter: 2012Q2

REPORT INFORMATION
  Report Type: 
  Country: None (occurrence: None)
  Receive Date: 20120405
  Receipt Date: 20120328
  Transmission Date: 20120825
  Serious: Yes (Hospitalization)
  Sender: FDA-Public Use
  Company Number: US-BAYER-2011-053229

PATIENT
  Age: 23 Year
  Sex: Female
  Weight: 83.9 kg

DRUGS (4)
  1. HYDROMORPHONE HCL [Concomitant]
     Dosage: 2 MG, UNK
     Route: 048
     Dates: start: 20110611
  2. ANTIBIOTICS [Concomitant]
  3. DROSPIRENONE AND ETHINYL ESTRADIOL [Suspect]
     Indication: CONTRACEPTION
     Dosage: UNK
     Dates: start: 20081101, end: 20090601
  4. DROSPIRENONE AND ETHINYL ESTRADIOL [Suspect]
     Indication: ACNE

REACTIONS (8)
  - INJURY [None]
  - PAIN [None]
  - PSYCHOLOGICAL TRAUMA [None]
  - ANHEDONIA [None]
  - FEAR [None]
  - DEEP VEIN THROMBOSIS [None]
  - ANXIETY [None]
  - EMOTIONAL DISTRESS [None]
